FAERS Safety Report 12555363 (Version 1)
Quarter: 2016Q3

REPORT INFORMATION
  Report Type: Spontaneous
  Country: US (occurrence: US)
  Receive Date: 20160714
  Receipt Date: 20160714
  Transmission Date: 20161109
  Serious: Yes (Other)
  Sender: FDA-Public Use
  Company Number: US-CIPLA LTD.-2016US09549

PATIENT

DRUGS (5)
  1. TEMOZOLOMIDE. [Suspect]
     Active Substance: TEMOZOLOMIDE
     Indication: ADRENOCORTICAL CARCINOMA
     Dosage: 100 MG/M2/DAY ON DAYS 1 TO 5 OF EACH CYCLE
     Route: 065
  2. VINCRISTINE [Suspect]
     Active Substance: VINCRISTINE
     Indication: ADRENOCORTICAL CARCINOMA
     Dosage: 1.5 MG/M2 (MAXIMUM DOSE: 2MG) OVER 1 MINUTE ON DAY 1
     Route: 042
  3. BEVACIZUMAB [Suspect]
     Active Substance: BEVACIZUMAB
     Indication: ADRENOCORTICAL CARCINOMA
     Dosage: 15 MG/KG (MAXIMUM DOSE 800 MG),OVER 90 MINUTES ON DAY 1
     Route: 065
  4. IRINOTECAN [Suspect]
     Active Substance: IRINOTECAN
     Indication: ADRENOCORTICAL CARCINOMA
     Dosage: 90 MG/M2/DAY ON DAYS 1 TO 5 OF EACH CYCLE
     Route: 048
  5. CEFIXIME. [Concomitant]
     Active Substance: CEFIXIME
     Indication: PROPHYLAXIS
     Dosage: 8 MG/KG (MAXIMUM DOSE 400 MG), FOR 10 DAYS STARTING 2 DAYS BEFORE EACH CHEMOTHERAPY CYCLE
     Route: 065

REACTIONS (1)
  - Disease progression [Unknown]
